FAERS Safety Report 18252248 (Version 1)
Quarter: 2020Q3

REPORT INFORMATION
  Report Type: Spontaneous
  Country: US (occurrence: US)
  Receive Date: 20200910
  Receipt Date: 20200910
  Transmission Date: 20201103
  Serious: No
  Sender: FDA-Public Use
  Company Number: US-FARMAPROD-202005-0745

PATIENT
  Sex: Female
  Weight: 54 kg

DRUGS (14)
  1. OMEGA?3 ACIDS [Concomitant]
     Active Substance: OMEGA-3 FATTY ACIDS
  2. LOSARTAN?HYDROCHLOROTHIAZIDE [Concomitant]
     Active Substance: HYDROCHLOROTHIAZIDE\LOSARTAN
  3. OXERVATE [Suspect]
     Active Substance: CENEGERMIN-BKBJ
     Indication: ULCERATIVE KERATITIS
  4. AMITRIPTYLINE HCL [Concomitant]
     Active Substance: AMITRIPTYLINE
  5. RESTASIS [Concomitant]
     Active Substance: CYCLOSPORINE
  6. ASPIRINE [Concomitant]
     Active Substance: ASPIRIN
  7. OXERVATE [Suspect]
     Active Substance: CENEGERMIN-BKBJ
     Indication: NEUROTROPHIC KERATOPATHY
     Route: 047
     Dates: start: 20200520
  8. SYSTANE GEL [Concomitant]
     Dosage: 0.3%?0.4%
  9. BIOTIN [Concomitant]
     Active Substance: BIOTIN
  10. METHIMAZOLE. [Concomitant]
     Active Substance: METHIMAZOLE
  11. PREVACID [Concomitant]
     Active Substance: LANSOPRAZOLE
  12. REFRESH OPTIVE [Concomitant]
     Active Substance: CARBOXYMETHYLCELLULOSE SODIUM\GLYCERIN
     Dosage: 0.5%?0.9%
  13. NORVASC [Concomitant]
     Active Substance: AMLODIPINE BESYLATE
  14. GABAPENTIN. [Concomitant]
     Active Substance: GABAPENTIN

REACTIONS (3)
  - Drug ineffective [Unknown]
  - Product use issue [Unknown]
  - Eye pain [Unknown]
